FAERS Safety Report 5759598-3 (Version None)
Quarter: 2008Q2

REPORT INFORMATION
  Report Type: 
  Country: None (occurrence: None)
  Receive Date: 20080605
  Receipt Date: 20080528
  Transmission Date: 20081010
  Serious: Yes (Death)
  Sender: FDA-Public Use
  Company Number: US-JNJFOC-20080401223

PATIENT
  Sex: Male
  Weight: 90.72 kg

DRUGS (5)
  1. DURAGESIC-100 [Suspect]
     Route: 062
  2. DURAGESIC-100 [Suspect]
     Indication: PAIN
     Route: 062
  3. DIAZEPAM [Suspect]
     Indication: DRUG USE FOR UNKNOWN INDICATION
  4. OXYCODONE HCL [Suspect]
     Indication: DRUG USE FOR UNKNOWN INDICATION
  5. CARBAMAZEPINE [Suspect]
     Indication: DRUG USE FOR UNKNOWN INDICATION

REACTIONS (5)
  - ARNOLD-CHIARI MALFORMATION [None]
  - MULTIPLE DRUG OVERDOSE ACCIDENTAL [None]
  - NERVOUS SYSTEM DISORDER [None]
  - SINUSITIS [None]
  - SUDDEN UNEXPLAINED DEATH IN EPILEPSY [None]
